FAERS Safety Report 18452896 (Version 1)
Quarter: 2020Q4

REPORT INFORMATION
  Report Type: Spontaneous
  Country: ES (occurrence: ES)
  Receive Date: 20201102
  Receipt Date: 20201102
  Transmission Date: 20210114
  Serious: Yes (Hospitalization)
  Sender: FDA-Public Use
  Company Number: ES-SUN PHARMACEUTICAL INDUSTRIES LTD-2020RR-266200

PATIENT
  Age: 55 Year
  Sex: Female

DRUGS (5)
  1. OMEPRAZOLE. [Suspect]
     Active Substance: OMEPRAZOLE
     Indication: GASTRITIS PROPHYLAXIS
     Dosage: 20 MILLIGRAM, DAILY
     Route: 048
     Dates: start: 2015, end: 20200701
  2. DUORESP SPIROMAX 160 MICROGRAMOS/4,5 MICROGRAMOS POLVO PARA INHALAC... [Concomitant]
     Indication: BRONCHIAL HYPERREACTIVITY
     Dosage: UNK
     Route: 055
     Dates: start: 20191201
  3. ATROVENT 20 MICROGRAMOS SOLUCION PARA INHALACION EN ENVASE A PRESIO... [Concomitant]
     Indication: BRONCHIAL HYPERREACTIVITY
     Dosage: UNK
     Route: 055
     Dates: start: 2015
  4. LOSARTAN (7157A) [Concomitant]
     Active Substance: LOSARTAN
     Indication: HYPERTENSION
     Dosage: 50 MILLIGRAM, DAILY
     Route: 048
     Dates: start: 20190501
  5. METAMIZOL (111A) [Concomitant]
     Active Substance: METAMIZOL SODIUM
     Indication: PAIN
     Dosage: UNK
     Route: 048
     Dates: start: 20180701

REACTIONS (3)
  - Hypomagnesaemia [Recovered/Resolved]
  - Paraesthesia [Recovered/Resolved]
  - Hypocalcaemia [Recovered/Resolved]

NARRATIVE: CASE EVENT DATE: 20200701
